FAERS Safety Report 9664028 (Version 2)
Quarter: 2015Q1

REPORT INFORMATION
  Report Type: Spontaneous
  Country: DK (occurrence: DK)
  Receive Date: 20131101
  Receipt Date: 20150326
  Transmission Date: 20150721
  Serious: Yes (Disabling)
  Sender: FDA-Public Use
  Company Number: DK-PFIZER INC-2013311074

PATIENT
  Age: 81 Year
  Sex: Female

DRUGS (11)
  1. SIMVASTATIN. [Concomitant]
     Active Substance: SIMVASTATIN
     Indication: HYPERCHOLESTEROLAEMIA
     Dosage: 40 MG, 1X/DAY
     Dates: start: 20110407
  2. HJERTEMAGNYL [Concomitant]
     Active Substance: ASPIRIN\MAGNESIUM OXIDE
     Indication: ANTICOAGULANT THERAPY
     Dosage: 75 MG, 1X/DAY
     Dates: start: 20120607
  3. COZAAR [Concomitant]
     Active Substance: LOSARTAN POTASSIUM
     Indication: HYPERTENSION
     Dosage: 100 MG, 1X/DAY
     Dates: start: 20110407, end: 20140812
  4. SYMBICORT FORTE TURBOHALER [Concomitant]
     Indication: CHRONIC OBSTRUCTIVE PULMONARY DISEASE
     Dosage: 3 DF, 2X/DAY
     Dates: start: 20110414
  5. IMDUR [Concomitant]
     Active Substance: ISOSORBIDE MONONITRATE
     Indication: ANGINA PECTORIS
     Dosage: 30 MG, 1X/DAY
     Dates: start: 20110407
  6. TRADOLAN [Concomitant]
     Active Substance: TRAMADOL
     Indication: PAIN
     Dosage: DOSE: 2+2+1. STRENGHT: 50MG.
     Dates: start: 20130813
  7. FURIX [Concomitant]
     Active Substance: FUROSEMIDE
     Indication: HYPERTENSION
     Dosage: 80 MG, 2X/DAY
     Dates: start: 20120214
  8. KALEORID [Concomitant]
     Active Substance: POTASSIUM CHLORIDE
     Indication: MINERAL SUPPLEMENTATION
     Dosage: 1500 MG, 2X/DAY
     Dates: start: 20120214
  9. LYRICA [Suspect]
     Active Substance: PREGABALIN
     Indication: NEURALGIA
     Dosage: 75 MG, 1X/DAY
     Route: 048
     Dates: start: 20130808, end: 20130909
  10. HJERTEMAGNYL [Concomitant]
     Active Substance: ASPIRIN\MAGNESIUM OXIDE
     Indication: THROMBOSIS PROPHYLAXIS
  11. CENTYL MED KALIUMKLORID [Concomitant]
     Active Substance: BENDROFLUMETHIAZIDE\POTASSIUM CHLORIDE
     Indication: HYPERTENSION
     Dosage: UNK
     Dates: start: 20130727

REACTIONS (6)
  - Dizziness [Recovering/Resolving]
  - Rash [Recovered/Resolved]
  - Mouth swelling [Recovered/Resolved]
  - Fall [Recovered/Resolved]
  - Visual impairment [Recovering/Resolving]
  - Nasal congestion [Recovered/Resolved]

NARRATIVE: CASE EVENT DATE: 201308
